FAERS Safety Report 6506811-0 (Version None)
Quarter: 2009Q4

REPORT INFORMATION
  Report Type: 
  Country: None (occurrence: None)
  Receive Date: 20091221
  Receipt Date: 20091210
  Transmission Date: 20100525
  Serious: Yes (Hospitalization)
  Sender: FDA-Public Use
  Company Number: JP-PFIZER INC-2009310086

PATIENT
  Age: 71 Year

DRUGS (6)
  1. RIFABUTIN [Suspect]
     Indication: MYCOBACTERIUM AVIUM COMPLEX INFECTION
     Dosage: 150 MG, 1X/DAY
     Route: 048
     Dates: start: 20090916, end: 20091007
  2. CLARITH [Concomitant]
     Dosage: UNK
     Route: 048
  3. ETHAMBUTOL [Concomitant]
     Dosage: UNK
     Route: 048
  4. CRAVIT [Concomitant]
     Route: 048
  5. SPELEAR [Concomitant]
     Dosage: UNK
     Route: 048
  6. THEOPHYLLINE [Concomitant]
     Dosage: UNK
     Route: 048

REACTIONS (1)
  - HEPATIC FUNCTION ABNORMAL [None]
